FAERS Safety Report 12120428 (Version 1)
Quarter: 2016Q1

REPORT INFORMATION
  Report Type: Other
  Country: FR (occurrence: FR)
  Receive Date: 20160226
  Receipt Date: 20160226
  Transmission Date: 20160526
  Serious: Yes (Hospitalization, Other)
  Sender: FDA-Public Use
  Company Number: FR-WARNER CHILCOTT, LLC-1048418

PATIENT
  Age: 58 Year
  Sex: Female

DRUGS (3)
  1. ENBREL [Suspect]
     Active Substance: ETANERCEPT
     Route: 058
     Dates: start: 200708, end: 20151218
  2. CORTANCYL [Concomitant]
     Active Substance: PREDNISONE
  3. ACTONEL [Suspect]
     Active Substance: RISEDRONATE SODIUM
     Indication: OSTEOPOROSIS
     Route: 048
     Dates: start: 201501

REACTIONS (1)
  - Intraductal proliferative breast lesion [Not Recovered/Not Resolved]
